FAERS Safety Report 12546732 (Version 2)
Quarter: 2016Q4

REPORT INFORMATION
  Report Type: Report from Study
  Country: None (occurrence: AR)
  Receive Date: 20160711
  Receipt Date: 20161025
  Transmission Date: 20170207
  Serious: Yes (Other)
  Sender: FDA-Public Use
  Company Number: AR-ABBVIE-16K-007-1606903-00

PATIENT
  Age: 57 Year
  Sex: Male

DRUGS (4)
  1. PROPRANOLOL [Concomitant]
     Active Substance: PROPRANOLOL\PROPRANOLOL HYDROCHLORIDE
     Indication: PRODUCT USED FOR UNKNOWN INDICATION
  2. SUCRALMAX [Concomitant]
     Indication: PRODUCT USED FOR UNKNOWN INDICATION
  3. LACTULON [Concomitant]
     Indication: PRODUCT USED FOR UNKNOWN INDICATION
  4. HUMIRA [Suspect]
     Active Substance: ADALIMUMAB
     Indication: RHEUMATOID ARTHRITIS
     Route: 058
     Dates: start: 20140916, end: 20160319

REACTIONS (8)
  - Arthralgia [Not Recovered/Not Resolved]
  - Oesophageal varices haemorrhage [Unknown]
  - Gastric ulcer [Recovering/Resolving]
  - Varices oesophageal [Not Recovered/Not Resolved]
  - White blood cell count decreased [Recovered/Resolved]
  - Musculoskeletal pain [Not Recovered/Not Resolved]
  - Liver disorder [Unknown]
  - Cholelithiasis [Recovering/Resolving]

NARRATIVE: CASE EVENT DATE: 201511
